FAERS Safety Report 14913034 (Version 1)
Quarter: 2018Q2

REPORT INFORMATION
  Report Type: Spontaneous
  Country: IT (occurrence: IT)
  Receive Date: 20180518
  Receipt Date: 20180518
  Transmission Date: 20180711
  Serious: Yes (Hospitalization)
  Sender: FDA-Public Use
  Company Number: PHHY2018IT002490

PATIENT
  Age: 45 Year
  Sex: Female

DRUGS (2)
  1. ALPRAZOLAM. [Suspect]
     Active Substance: ALPRAZOLAM
     Indication: PRODUCT USED FOR UNKNOWN INDICATION
     Dosage: 4 DF, UNK (TOTAL)
     Route: 048
     Dates: start: 20171214, end: 20171214
  2. MODALINA [Suspect]
     Active Substance: TRIFLUOPERAZINE HYDROCHLORIDE
     Indication: PRODUCT USED FOR UNKNOWN INDICATION
     Dosage: 15 DF, UNK (TOTAL)
     Route: 048

REACTIONS (5)
  - Drug abuse [Recovered/Resolved]
  - Suicide attempt [Recovered/Resolved]
  - Restlessness [Recovered/Resolved]
  - Respiratory acidosis [Recovered/Resolved]
  - Confusional state [Recovered/Resolved]

NARRATIVE: CASE EVENT DATE: 20171214
